FAERS Safety Report 8231194-8 (Version None)
Quarter: 2012Q1

REPORT INFORMATION
  Report Type: 
  Country: None (occurrence: None)
  Receive Date: 20120323
  Receipt Date: 20120323
  Transmission Date: 20120608
  Serious: Yes (Disabling)
  Sender: FDA-Public Use
  Company Number: None

PATIENT
  Sex: Female

DRUGS (1)
  1. NITROFURANTOIN [Suspect]
     Indication: URINARY TRACT INFECTION
     Route: 048
     Dates: start: 20120315, end: 20120321

REACTIONS (5)
  - LIP SWELLING [None]
  - DYSPHAGIA [None]
  - URTICARIA [None]
  - SWOLLEN TONGUE [None]
  - EYE SWELLING [None]
